FAERS Safety Report 9598571 (Version 2)
Quarter: 2013Q4

REPORT INFORMATION
  Report Type: Spontaneous
  Country: US (occurrence: US)
  Receive Date: 20131004
  Receipt Date: 20131004
  Transmission Date: 20140711
  Serious: No
  Sender: FDA-Public Use
  Company Number: US-AMGEN-USASP2013022238

PATIENT
  Age: 61 Year
  Sex: Female
  Weight: 72.56 kg

DRUGS (13)
  1. ENBREL [Suspect]
     Indication: PRODUCT USED FOR UNKNOWN INDICATION
     Dosage: 50 MG, QWK
     Route: 058
  2. FLEXERIL                           /00428402/ [Concomitant]
     Dosage: 10 MG, UNK
  3. LIPITOR [Concomitant]
     Dosage: 10 MG, UNK
  4. VITAMIN D                          /00107901/ [Concomitant]
     Dosage: 5000 UNIT, UNK
  5. CALCIUM +D                         /00944201/ [Concomitant]
     Dosage: UNK
  6. NADOLOL [Concomitant]
     Dosage: 40 MG, UNK
  7. XANAX [Concomitant]
     Dosage: 1 MG, UNK
  8. AMBIEN [Concomitant]
     Dosage: 10 MG, UNK
  9. IMITREX                            /01044802/ [Concomitant]
     Dosage: 25 MG, UNK
  10. CIPRO                              /00697201/ [Concomitant]
     Dosage: 250 MG, UNK
  11. EXALGO [Concomitant]
     Dosage: 8 MG, UNK
  12. TOPAMAX [Concomitant]
     Dosage: 100 MG, UNK
  13. HYDROCODONE W/APAP                 /00607101/ [Concomitant]
     Dosage: 2.5-500

REACTIONS (4)
  - Influenza like illness [Unknown]
  - Pain [Unknown]
  - Fatigue [Unknown]
  - Sinusitis [Unknown]
